FAERS Safety Report 5763079-0 (Version None)
Quarter: 2008Q2

REPORT INFORMATION
  Report Type: 
  Country: None (occurrence: None)
  Receive Date: 20080609
  Receipt Date: 20080528
  Transmission Date: 20081010
  Serious: Yes (Other)
  Sender: FDA-Public Use
  Company Number: US-ELI_LILLY_AND_COMPANY-US200805005745

PATIENT
  Sex: Female

DRUGS (2)
  1. FORTEO [Suspect]
     Indication: OSTEOPOROSIS
     Dosage: 20 UG, UNK
     Dates: start: 20060101, end: 20070101
  2. FORTEO [Suspect]
     Dosage: 20 UG, UNK
     Dates: start: 20080507

REACTIONS (2)
  - BONE PAIN [None]
  - OSTEOARTHRITIS [None]
